FAERS Safety Report 10797596 (Version 2)
Quarter: 2015Q1

REPORT INFORMATION
  Report Type: Spontaneous
  Country: US (occurrence: US)
  Receive Date: 20150216
  Receipt Date: 20150313
  Transmission Date: 20150721
  Serious: Yes (Death, Life-Threatening, Hospitalization, Disabling, Other)
  Sender: FDA-Public Use
  Company Number: US-009507513-1502USA007042

PATIENT
  Sex: Male
  Weight: 55.78 kg

DRUGS (1)
  1. JANUMET [Suspect]
     Active Substance: METFORMIN HYDROCHLORIDE\SITAGLIPTIN PHOSPHATE
     Indication: TYPE 2 DIABETES MELLITUS
     Dosage: 50 MG, BID
     Route: 048
     Dates: start: 20081202, end: 20130805

REACTIONS (10)
  - Dehydration [Unknown]
  - Metastasis [Unknown]
  - Upper gastrointestinal haemorrhage [Unknown]
  - Helicobacter infection [Unknown]
  - Radiotherapy to pancreas [Unknown]
  - Pancreatic carcinoma [Unknown]
  - Death [Fatal]
  - Hypokalaemia [Unknown]
  - Metastases to liver [Unknown]
  - Tumour compression [Unknown]

NARRATIVE: CASE EVENT DATE: 201302
